FAERS Safety Report 11252116 (Version 1)
Quarter: 2015Q3

REPORT INFORMATION
  Report Type: Spontaneous
  Country: US (occurrence: US)
  Receive Date: 20150708
  Receipt Date: 20150708
  Transmission Date: 20151125
  Serious: Yes (Hospitalization, Other)
  Sender: FDA-Public Use
  Company Number: US-ELI_LILLY_AND_COMPANY-US201304000273

PATIENT
  Age: 48 Year
  Sex: Female

DRUGS (4)
  1. FENTANYL. [Concomitant]
     Active Substance: FENTANYL
     Dosage: 100 UG, UNK
     Route: 042
  2. PROZAC [Suspect]
     Active Substance: FLUOXETINE HYDROCHLORIDE
     Dosage: 20 MG, BID
  3. ZYVOX [Concomitant]
     Active Substance: LINEZOLID
     Dosage: 600 MG, UNK
     Dates: start: 20130213
  4. SEROQUEL [Concomitant]
     Active Substance: QUETIAPINE FUMARATE
     Dosage: 25 MG, BID
     Dates: start: 201302

REACTIONS (1)
  - Serotonin syndrome [Unknown]

NARRATIVE: CASE EVENT DATE: 201302
